FAERS Safety Report 8290333-3 (Version None)
Quarter: 2012Q2

REPORT INFORMATION
  Report Type: 
  Country: None (occurrence: None)
  Receive Date: 20120412
  Receipt Date: 20120412
  Transmission Date: 20120825
  Serious: Yes (Life-Threatening, Hospitalization)
  Sender: FDA-Public Use
  Company Number: None

PATIENT
  Sex: Female
  Weight: 99.1 kg

DRUGS (3)
  1. ISOVUE-370 [Suspect]
     Indication: COMPUTERISED TOMOGRAM
     Dosage: 90ML OVER 45 SECONDS IV
     Route: 042
     Dates: start: 20120323
  2. ISOVUE-370 [Suspect]
     Indication: COMPUTERISED TOMOGRAM ABDOMEN
     Dosage: 90ML OVER 45 SECONDS IV
     Route: 042
     Dates: start: 20120323
  3. GASTROGRAFIN [Concomitant]

REACTIONS (3)
  - DYSPNOEA [None]
  - STRIDOR [None]
  - SWOLLEN TONGUE [None]
